FAERS Safety Report 9742323 (Version 1)
Quarter: 2013Q4

REPORT INFORMATION
  Report Type: Spontaneous
  Country: US (occurrence: US)
  Receive Date: 20131210
  Receipt Date: 20131210
  Transmission Date: 20140711
  Serious: No
  Sender: FDA-Public Use
  Company Number: US-ENDO PHARMACEUTICALS INC.-SPIR20120005

PATIENT
  Sex: Male

DRUGS (3)
  1. SPIRONOLACTONE [Suspect]
     Indication: FLUID RETENTION
     Route: 048
     Dates: start: 2012, end: 20120716
  2. SPIRONOLACTONE [Suspect]
     Indication: HYPOKALAEMIA
  3. FUROSEMIDE [Concomitant]
     Indication: FLUID RETENTION
     Route: 048

REACTIONS (2)
  - Nipple pain [Recovering/Resolving]
  - Gynaecomastia [Not Recovered/Not Resolved]
